FAERS Safety Report 24731197 (Version 1)
Quarter: 2024Q4

REPORT INFORMATION
  Report Type: Spontaneous
  Country: FR (occurrence: FR)
  Receive Date: 20241213
  Receipt Date: 20241213
  Transmission Date: 20250114
  Serious: Yes (Hospitalization)
  Sender: RANBAXY
  Company Number: FR-AFSSAPS-PP2024001237

PATIENT
  Age: 23 Year
  Sex: Female
  Weight: 68 kg

DRUGS (9)
  1. RISPERIDONE [Suspect]
     Active Substance: RISPERIDONE
     Indication: Psychotic disorder
     Dosage: 4 MG/ DAY
     Route: 048
     Dates: start: 20240701, end: 20240813
  2. ACETAMINOPHEN [Suspect]
     Active Substance: ACETAMINOPHEN
     Indication: Pain
     Dosage: 3000 MG/ DAY
     Route: 048
     Dates: start: 20240626, end: 20240813
  3. ZOPICLONE [Suspect]
     Active Substance: ZOPICLONE
     Indication: Insomnia
     Dosage: 7.5 MG/ DAY
     Route: 048
     Dates: start: 20240614, end: 20240813
  4. OXCARBAZEPINE [Suspect]
     Active Substance: OXCARBAZEPINE
     Indication: Psychotic disorder
     Dosage: 900 MG/ DAY
     Route: 048
     Dates: start: 20240722, end: 20240813
  5. TROPATEPINE HYDROCHLORIDE [Suspect]
     Active Substance: TROPATEPINE HYDROCHLORIDE
     Indication: Extrapyramidal disorder
     Dosage: 10 MG/ DAY
     Route: 048
     Dates: start: 20240626, end: 20240813
  6. LOXAPINE [Suspect]
     Active Substance: LOXAPINE
     Indication: Psychotic disorder
     Dosage: 40 MG/ DAY
     Route: 048
     Dates: start: 20240626, end: 20240813
  7. DIAZEPAM [Suspect]
     Active Substance: DIAZEPAM
     Indication: Anxiety
     Dosage: 90 MG/ DAY
     Route: 048
     Dates: start: 20240614, end: 20240813
  8. ABILIFY [Suspect]
     Active Substance: ARIPIPRAZOLE
     Indication: Mania
     Dosage: 800 MG/ DAY
     Route: 030
     Dates: start: 20240618, end: 20240618
  9. TRIMEPRAZINE [Concomitant]
     Active Substance: TRIMEPRAZINE
     Indication: Insomnia
     Dosage: 20 MG/ DAY
     Route: 048
     Dates: start: 20240625, end: 20240813

REACTIONS (1)
  - Rash maculo-papular [Recovered/Resolved]

NARRATIVE: CASE EVENT DATE: 20240812
